FAERS Safety Report 7094249-X (Version None)
Quarter: 2010Q4

REPORT INFORMATION
  Report Type: 
  Country: None (occurrence: None)
  Receive Date: 20101110
  Receipt Date: 20101104
  Transmission Date: 20110411
  Serious: Yes (Other)
  Sender: FDA-Public Use
  Company Number: FR-PFIZER INC-2010140542

PATIENT
  Sex: Female

DRUGS (1)
  1. LYRICA [Suspect]
     Dosage: UNK
     Dates: start: 20101007

REACTIONS (5)
  - BURNING SENSATION [None]
  - CONSTIPATION [None]
  - DERMATITIS ALLERGIC [None]
  - PRURITUS [None]
  - VISION BLURRED [None]
